FAERS Safety Report 5398663-X (Version None)
Quarter: 2007Q3

REPORT INFORMATION
  Report Type: 
  Country: None (occurrence: None)
  Receive Date: 20070726
  Receipt Date: 20061212
  Transmission Date: 20080115
  Serious: No
  Sender: FDA-Public Use
  Company Number: US-AMGEN-KDL204319

PATIENT
  Sex: Male
  Weight: 84.4 kg

DRUGS (14)
  1. PROCRIT [Suspect]
     Indication: RENAL FAILURE CHRONIC
     Route: 058
  2. LOVENOX [Concomitant]
     Route: 058
  3. PEPCID [Concomitant]
     Route: 042
  4. CEREBYX [Concomitant]
     Route: 042
  5. ALTACE [Concomitant]
  6. TENORMIN [Concomitant]
  7. REGLAN [Concomitant]
  8. FORTAZ [Concomitant]
  9. CLONIDINE [Concomitant]
     Route: 062
  10. CIPRO [Concomitant]
  11. DIFLUCAN [Concomitant]
  12. FLAGYL [Concomitant]
  13. ZYVOX [Concomitant]
  14. ROBINUL [Concomitant]

REACTIONS (3)
  - INFECTION [None]
  - RETICULOCYTE COUNT INCREASED [None]
  - THERAPEUTIC RESPONSE DELAYED [None]
